FAERS Safety Report 16124219 (Version 1)
Quarter: 2019Q1

REPORT INFORMATION
  Report Type: Spontaneous
  Country: US (occurrence: US)
  Receive Date: 20190327
  Receipt Date: 20190327
  Transmission Date: 20190418
  Serious: No
  Sender: FDA-Public Use
  Company Number: US-ANIPHARMA-2019-US-002164

PATIENT
  Age: 71 Year
  Sex: Male

DRUGS (8)
  1. CASODEX [Suspect]
     Active Substance: BICALUTAMIDE
     Indication: PROSTATE CANCER STAGE IV
     Dosage: UNK
     Route: 048
     Dates: start: 20160902
  2. FIRMAGON [Suspect]
     Active Substance: DEGARELIX ACETATE
     Dosage: UNKNOWN
     Route: 065
     Dates: start: 20160902, end: 20170213
  3. TAXOTERE [Concomitant]
     Active Substance: DOCETAXEL
     Dosage: UNK
     Route: 065
     Dates: start: 20171017
  4. PREDNISONE. [Suspect]
     Active Substance: PREDNISONE
     Dosage: UNK
     Route: 065
     Dates: start: 20170619
  5. XTANDI [Concomitant]
     Active Substance: ENZALUTAMIDE
     Dosage: UNKNOWN
     Route: 065
     Dates: start: 20161010
  6. XGEVA [Concomitant]
     Active Substance: DENOSUMAB
     Dosage: UNKNOWN
     Route: 065
     Dates: start: 20161010
  7. LUPRON [Suspect]
     Active Substance: LEUPROLIDE ACETATE
     Dosage: UNK
     Route: 065
     Dates: start: 20170213
  8. ZYTIGA [Suspect]
     Active Substance: ABIRATERONE ACETATE
     Dosage: UNK
     Route: 065
     Dates: start: 20170619, end: 20171017

REACTIONS (1)
  - Prostatic specific antigen increased [Unknown]

NARRATIVE: CASE EVENT DATE: 201609
